FAERS Safety Report 5579785-7 (Version None)
Quarter: 2008Q1

REPORT INFORMATION
  Report Type: 
  Country: None (occurrence: None)
  Receive Date: 20080102
  Receipt Date: 20071220
  Transmission Date: 20080703
  Serious: Yes (Other)
  Sender: FDA-Public Use
  Company Number: CL-PFIZER INC-2007105876

PATIENT
  Age: 37 Year
  Sex: Female

DRUGS (2)
  1. CHANTIX [Suspect]
     Indication: EX-SMOKER
     Route: 048
     Dates: start: 20071201, end: 20071201
  2. HEPARIN [Concomitant]
     Indication: THROMBOSIS
     Route: 058

REACTIONS (3)
  - HAEMATOCHEZIA [None]
  - NAUSEA [None]
  - VERTIGO [None]
